FAERS Safety Report 13781471 (Version 5)
Quarter: 2017Q3

REPORT INFORMATION
  Report Type: Spontaneous
  Country: CO (occurrence: CO)
  Receive Date: 20170724
  Receipt Date: 20170811
  Transmission Date: 20171127
  Serious: Yes (Other)
  Sender: FDA-Public Use
  Company Number: PHHY2017CO106664

PATIENT
  Age: 70 Year
  Sex: Male
  Weight: 65 kg

DRUGS (14)
  1. ALENDRONIC ACID [Suspect]
     Active Substance: ALENDRONIC ACID
     Indication: OSTEOPOROSIS
     Dosage: 70 MG, QW
     Route: 065
  2. CHOLESTYRAMINE. [Suspect]
     Active Substance: CHOLESTYRAMINE
     Indication: PRODUCT USED FOR UNKNOWN INDICATION
     Route: 065
  3. CALCIUM CARBONATE AND VITAMIN D [Concomitant]
     Active Substance: CALCIUM CARBONATE\VITAMIN D
     Indication: OSTEOPOROSIS
     Dosage: UNK UNK, QD (EVERY 24 HOURS FOR 90 DAYS)
     Route: 065
  4. MYCOPHENOLIC ACID. [Suspect]
     Active Substance: MYCOPHENOLIC ACID
     Indication: LIVER TRANSPLANT
     Dosage: 360 MG, Q12H
     Route: 048
     Dates: start: 201008
  5. PREDNISOLONE. [Suspect]
     Active Substance: PREDNISOLONE
     Indication: PRODUCT USED FOR UNKNOWN INDICATION
     Dosage: 5 MG, QOD
     Route: 065
  6. TACROLIMUS. [Suspect]
     Active Substance: TACROLIMUS
     Indication: LIVER TRANSPLANT
     Dosage: 4 MG, QD (2 MG PM, 2 MG AM)
     Route: 048
  7. CALCITRIOL. [Suspect]
     Active Substance: CALCITRIOL
     Indication: OSTEOPOROSIS
     Dosage: 1 DF, Q12H
     Route: 048
  8. URSACOL [Concomitant]
     Active Substance: URSODIOL
     Indication: PRODUCT USED FOR UNKNOWN INDICATION
     Dosage: UNK
     Route: 065
  9. MYCOPHENOLIC ACID. [Suspect]
     Active Substance: MYCOPHENOLIC ACID
     Dosage: 180 MG, Q12H
     Route: 048
  10. MYCOPHENOLIC ACID. [Suspect]
     Active Substance: MYCOPHENOLIC ACID
     Dosage: 540 MG, Q12H (FOR 90 DAYS)
     Route: 048
     Dates: start: 20170613
  11. PROPRANOLOL [Suspect]
     Active Substance: PROPRANOLOL HYDROCHLORIDE
     Indication: PRODUCT USED FOR UNKNOWN INDICATION
     Dosage: UNK
     Route: 065
  12. TACROLIMUS. [Suspect]
     Active Substance: TACROLIMUS
     Dosage: 5 MG, QD
     Route: 048
     Dates: start: 20170613
  13. OMEPRAZOLE. [Suspect]
     Active Substance: OMEPRAZOLE
     Indication: PRODUCT USED FOR UNKNOWN INDICATION
     Dosage: 20 MG, QD (EVERY 24 HOURS, FOR 90 DAYS)
     Route: 048
  14. CALCIUM CARBONATE. [Concomitant]
     Active Substance: CALCIUM CARBONATE
     Indication: OSTEOPOROSIS
     Dosage: 600 MG, Q12H
     Route: 065

REACTIONS (23)
  - Hepatic function abnormal [Unknown]
  - Monocyte percentage increased [Unknown]
  - Blood pressure increased [Unknown]
  - Gamma-glutamyltransferase increased [Unknown]
  - Body surface area decreased [Unknown]
  - Immunosuppressant drug level decreased [Unknown]
  - Alanine aminotransferase increased [Unknown]
  - Carcinoembryonic antigen increased [Unknown]
  - Eosinophil count increased [Unknown]
  - Creatinine renal clearance decreased [Unknown]
  - Liver transplant rejection [Unknown]
  - Blood calcium decreased [Unknown]
  - Aspartate aminotransferase increased [Unknown]
  - Portal vein occlusion [Unknown]
  - Blood alkaline phosphatase increased [Unknown]
  - Monocyte count increased [Unknown]
  - Hepatocellular carcinoma [Unknown]
  - Eosinophil percentage increased [Unknown]
  - Basophil count increased [Unknown]
  - Body mass index increased [Unknown]
  - Respiratory rate increased [Unknown]
  - Protein urine present [Unknown]
  - Urine output increased [Unknown]

NARRATIVE: CASE EVENT DATE: 20110127
